FAERS Safety Report 9405319 (Version 3)
Quarter: 2013Q4

REPORT INFORMATION
  Report Type: Spontaneous
  Country: DE (occurrence: None)
  Receive Date: 20130703
  Receipt Date: 20131011
  Transmission Date: 20140711
  Serious: Yes (Other)
  Sender: FDA-Public Use
  Company Number: 2013036668

PATIENT
  Age: 69 Year
  Sex: Female

DRUGS (7)
  1. HIZENTRA [Suspect]
     Indication: IMMUNODEFICIENCY COMMON VARIABLE
     Dosage: 4 G 2X/WEEK, START AND STOP DATE: MAY 2013 4
     Route: 058
  2. IMMUNOGLOBULINES HUMAINES CNTS (IMMUNOGLOBULIN HUMAN NORMAL) [Concomitant]
  3. AZATHIOPRINE (AZATHIOPRINE) [Concomitant]
  4. PLAVIX/ 01220701/ (CLOPIDOGREL) [Concomitant]
  5. BONVIVA (IBANDRONIC ACID) [Concomitant]
  6. PRENISOLONE (PRENISOLONE) [Concomitant]
  7. ANTIBIOTICS (ANTIBIOTICS) [Concomitant]

REACTIONS (6)
  - Cellulitis [None]
  - Hypersensitivity [None]
  - Pruritus [None]
  - Erythema [None]
  - Abdominal abscess [None]
  - Off label use [None]
